FAERS Safety Report 5275834-4 (Version None)
Quarter: 2007Q1

REPORT INFORMATION
  Report Type: 
  Country: None (occurrence: None)
  Receive Date: 20061213
  Receipt Date: 20041207
  Transmission Date: 20070707
  Serious: Yes (Hospitalization)
  Sender: FDA-Public Use
  Company Number: 2004UW24985

PATIENT
  Age: 55 Year
  Sex: Male
  Weight: 106.59 kg

DRUGS (9)
  1. SEROQUEL [Suspect]
     Indication: PARANOIA
     Dosage: 600 MG DAILY PO
     Route: 048
  2. SEROQUEL [Suspect]
     Indication: PARANOIA
     Dosage: 400 MG DAILY PO
     Route: 048
  3. AMBIEN [Concomitant]
  4. DECONAMINE - SLOW RELEASE [Concomitant]
  5. GLUCOPHAGE [Concomitant]
  6. GLUCOVANCE [Concomitant]
  7. LOPRESSOR [Concomitant]
  8. NEURONTIN [Concomitant]
  9. CLONIDINE [Concomitant]

REACTIONS (3)
  - BLOOD GLUCOSE INCREASED [None]
  - BLOOD PRESSURE INCREASED [None]
  - CATATONIA [None]
